FAERS Safety Report 10533529 (Version 1)
Quarter: 2014Q4

REPORT INFORMATION
  Report Type: Report from Study
  Country: NL (occurrence: NL)
  Receive Date: 20141022
  Receipt Date: 20141022
  Transmission Date: 20150529
  Serious: Yes (Death)
  Sender: FDA-Public Use
  Company Number: PHHY2014NL137777

PATIENT
  Age: 82 Year
  Sex: Female

DRUGS (3)
  1. ACLASTA [Suspect]
     Active Substance: ZOLEDRONIC ACID
     Dosage: 5 MG, ONE PER 52 WEEKS
     Route: 042
     Dates: start: 20130807
  2. ACLASTA [Suspect]
     Active Substance: ZOLEDRONIC ACID
     Indication: OSTEOPOROSIS
     Dosage: 5 MG, ONE PER 52 WEEKS
     Route: 042
     Dates: start: 20090807
  3. ACLASTA [Suspect]
     Active Substance: ZOLEDRONIC ACID
     Dosage: 5 MG, ONE PER 52 WEEKS
     Route: 042
     Dates: start: 20120806

REACTIONS (1)
  - Death [Fatal]

NARRATIVE: CASE EVENT DATE: 20140821
